FAERS Safety Report 7960284-X (Version None)
Quarter: 2011Q4

REPORT INFORMATION
  Report Type: 
  Country: None (occurrence: None)
  Receive Date: 20111206
  Receipt Date: 20111201
  Transmission Date: 20120403
  Serious: Yes (Hospitalization)
  Sender: FDA-Public Use
  Company Number: PL-COVIDIEN/TYCO HEALTHCARE/MALLINCKRODT-T201102796

PATIENT
  Sex: Female
  Weight: 74 kg

DRUGS (1)
  1. OPTIRAY 160 [Suspect]
     Indication: ANGIOGRAM
     Dosage: 80 ML, SINGLE
     Route: 042
     Dates: start: 20111023, end: 20111023

REACTIONS (6)
  - THROAT IRRITATION [None]
  - PRURITUS [None]
  - RASH [None]
  - BLISTER [None]
  - SKIN WARM [None]
  - CHILLS [None]
